FAERS Safety Report 7272176 (Version 35)
Quarter: 2019Q4

REPORT INFORMATION
  Report Type: Report from Study
  Country: CA (occurrence: CA)
  Receive Date: 20100205
  Receipt Date: 20191231
  Transmission Date: 20200122
  Serious: Yes (Hospitalization, Other)
  Sender: FDA-Public Use
  Company Number: PHHY2009CA53601

PATIENT
  Age: 52 Year
  Sex: Female

DRUGS (6)
  1. SANDOSTATIN LAR DEPOT [Suspect]
     Active Substance: OCTREOTIDE ACETATE
     Indication: PITUITARY TUMOUR
     Dosage: 20 MG, QMO (EVERY 4 WEEKS)
     Route: 030
     Dates: start: 20091028, end: 20101227
  2. CORTEF [Concomitant]
     Active Substance: HYDROCORTISONE
     Indication: PRODUCT USED FOR UNKNOWN INDICATION
     Dosage: 10 MG, QD
     Route: 065
  3. SYNTHROID [Concomitant]
     Active Substance: LEVOTHYROXINE SODIUM
     Indication: PRODUCT USED FOR UNKNOWN INDICATION
     Dosage: UNK
     Route: 065
  4. CODEINE [Suspect]
     Active Substance: CODEINE
     Indication: PRODUCT USED FOR UNKNOWN INDICATION
     Dosage: UNK
     Route: 065
  5. ELTROXIN [Concomitant]
     Active Substance: LEVOTHYROXINE
     Indication: PRODUCT USED FOR UNKNOWN INDICATION
     Dosage: 0.1 MG, QD (DAILY)
     Route: 065
  6. SANDOSTATIN LAR DEPOT [Suspect]
     Active Substance: OCTREOTIDE ACETATE
     Dosage: 20 MG, QMO
     Route: 030

REACTIONS (31)
  - Abdominal pain [Unknown]
  - Pneumonia [Unknown]
  - Breast hyperplasia [Unknown]
  - Hypoaesthesia eye [Unknown]
  - Dysgeusia [Recovering/Resolving]
  - Chronic sinusitis [Recovering/Resolving]
  - Drug ineffective [Unknown]
  - Anxiety [Unknown]
  - Feeling abnormal [Unknown]
  - Pancreatitis acute [Unknown]
  - Hypoaesthesia [Unknown]
  - Blood pressure increased [Unknown]
  - Body temperature decreased [Unknown]
  - Bronchitis [Unknown]
  - Blood thyroid stimulating hormone decreased [Unknown]
  - Depressed mood [Unknown]
  - Pain [Recovered/Resolved]
  - Fatigue [Recovered/Resolved]
  - Ocular discomfort [Unknown]
  - Muscular weakness [Unknown]
  - Malaise [Recovering/Resolving]
  - Cholelithiasis [Recovered/Resolved]
  - Pyrexia [Unknown]
  - Parosmia [Unknown]
  - Benign breast neoplasm [Unknown]
  - Pleural effusion [Unknown]
  - Influenza [Unknown]
  - Myalgia [Unknown]
  - Headache [Unknown]
  - Cerebrospinal fluid leakage [Unknown]
  - Headache [Recovered/Resolved]

NARRATIVE: CASE EVENT DATE: 20100118
